FAERS Safety Report 18515243 (Version 3)
Quarter: 2021Q1

REPORT INFORMATION
  Report Type: Spontaneous
  Country: JP (occurrence: JP)
  Receive Date: 20201118
  Receipt Date: 20210312
  Transmission Date: 20210419
  Serious: Yes (Hospitalization, Other)
  Sender: FDA-Public Use
  Company Number: JP-AMGEN-JPNSP2020185353

PATIENT
  Age: 78 Year
  Sex: Male
  Weight: 55.5 kg

DRUGS (8)
  1. ELPLAT [Suspect]
     Active Substance: OXALIPLATIN
     Indication: RECTOSIGMOID CANCER
     Dosage: 120 MILLIGRAM, Q2WEEKS
     Route: 042
     Dates: start: 20200917, end: 20201021
  2. 5?FU [FLUOROURACIL] [Suspect]
     Active Substance: FLUOROURACIL
     Indication: RECTOSIGMOID CANCER
     Dosage: 560 MILLIGRAM, Q2WK
     Route: 042
     Dates: start: 20200917, end: 20201021
  3. LEVOFOLINATE [CALCIUM LEVOFOLINATE] [Suspect]
     Active Substance: LEVOLEUCOVORIN CALCIUM
     Indication: RECTOSIGMOID CANCER
     Dosage: 310 MILLIGRAM, Q2WEEKS
     Route: 042
     Dates: start: 20200917
  4. 5?FU [FLUOROURACIL] [Suspect]
     Active Substance: FLUOROURACIL
     Dosage: 2600 MILLIGRAM, Q2WK
     Route: 042
     Dates: start: 20201111
  5. VECTIBIX [Suspect]
     Active Substance: PANITUMUMAB
     Indication: COLON CANCER
     Dosage: 330 MILLIGRAM, Q2WK
     Route: 042
     Dates: start: 20201007, end: 20201021
  6. VECTIBIX [Suspect]
     Active Substance: PANITUMUMAB
     Indication: RECTOSIGMOID CANCER
     Dosage: 200 MILLIGRAM, Q2WK
     Route: 042
     Dates: start: 20201111
  7. ELPLAT [Suspect]
     Active Substance: OXALIPLATIN
     Dosage: 90 MILLIGRAM, Q2WEEKS
     Route: 042
     Dates: start: 20201111
  8. 5?FU [FLUOROURACIL] [Suspect]
     Active Substance: FLUOROURACIL
     Dosage: 3300 MILLIGRAM, Q2WK
     Route: 042
     Dates: start: 20200917, end: 20201021

REACTIONS (1)
  - Myelosuppression [Recovered/Resolved]

NARRATIVE: CASE EVENT DATE: 20201021
